FAERS Safety Report 7080793-8 (Version None)
Quarter: 2010Q4

REPORT INFORMATION
  Report Type: 
  Country: None (occurrence: None)
  Receive Date: 20101103
  Receipt Date: 20101025
  Transmission Date: 20110411
  Serious: Yes (Hospitalization, Other)
  Sender: FDA-Public Use
  Company Number: US-ASTRAZENECA-2010SE40209

PATIENT
  Age: 26982 Day
  Sex: Female
  Weight: 65.3 kg

DRUGS (13)
  1. CRESTOR [Suspect]
     Indication: HYPERCHOLESTEROLAEMIA
     Route: 048
  2. CRESTOR [Suspect]
     Indication: HYPERLIPIDAEMIA
     Route: 048
  3. CRESTOR [Suspect]
     Dosage: 20MG AND 40MG TABLETS DAILY, TOTAL 60MG DAILY
     Route: 048
     Dates: start: 20100714, end: 20100801
  4. CRESTOR [Suspect]
     Dosage: 20MG AND 40MG TABLETS DAILY, TOTAL 60MG DAILY
     Route: 048
     Dates: start: 20100714, end: 20100801
  5. PLAVIX [Concomitant]
  6. EXFORGE [Concomitant]
     Dosage: 10/160
  7. ASPIRIN [Concomitant]
  8. POTASSIUM CHLORIDE [Concomitant]
  9. AMITRIPTYLINE HCL [Concomitant]
  10. NORVASC [Concomitant]
  11. VALSARTAN [Concomitant]
  12. SIMVASTATIN [Concomitant]
  13. ASPIRIN [Concomitant]

REACTIONS (7)
  - ACCIDENTAL OVERDOSE [None]
  - GOUT [None]
  - HAEMATURIA [None]
  - HYPERLIPIDAEMIA [None]
  - HYPERTENSION [None]
  - PAIN IN EXTREMITY [None]
  - RHABDOMYOLYSIS [None]
